FAERS Safety Report 7237646-1 (Version None)
Quarter: 2011Q1

REPORT INFORMATION
  Report Type: 
  Country: None (occurrence: None)
  Receive Date: 20110121
  Receipt Date: 20110117
  Transmission Date: 20110831
  Serious: Yes (Death, Other)
  Sender: FDA-Public Use
  Company Number: PHHY2010US84027

PATIENT
  Age: 19 Year
  Sex: Female
  Weight: 41.27 kg

DRUGS (3)
  1. MORPHINE [Concomitant]
  2. XANAX [Concomitant]
  3. TOBI [Suspect]
     Indication: CYSTIC FIBROSIS
     Dosage: 300 MG, BID (01 AMPOULE)
     Dates: start: 20080514, end: 20100411

REACTIONS (6)
  - RESPIRATORY FAILURE [None]
  - CACHEXIA [None]
  - LUNG DISORDER [None]
  - CREPITATIONS [None]
  - BRONCHIECTASIS [None]
  - BACTERIAL TEST POSITIVE [None]
